FAERS Safety Report 18882638 (Version 1)
Quarter: 2021Q1

REPORT INFORMATION
  Report Type: Spontaneous
  Country: FR (occurrence: FR)
  Receive Date: 20210212
  Receipt Date: 20210212
  Transmission Date: 20210420
  Serious: Yes (Other)
  Sender: FDA-Public Use
  Company Number: FR-BIOVITRUM-2021FR1313

PATIENT
  Age: 46 Year
  Sex: Male
  Weight: 110 kg

DRUGS (1)
  1. KINERET [Suspect]
     Active Substance: ANAKINRA
     Indication: VASCULITIS
     Route: 058
     Dates: start: 20201123, end: 20201211

REACTIONS (5)
  - Type IV hypersensitivity reaction [Recovered/Resolved]
  - Injection site reaction [Recovered/Resolved]
  - Off label use [Recovered/Resolved]
  - Rash pruritic [Recovered/Resolved]
  - Dermatitis allergic [Recovered/Resolved]

NARRATIVE: CASE EVENT DATE: 20201123
